FAERS Safety Report 4387009-1 (Version None)
Quarter: 2004Q2

REPORT INFORMATION
  Report Type: 
  Country: None (occurrence: None)
  Receive Date: 20040630
  Receipt Date: 20030103
  Transmission Date: 20050107
  Serious: No
  Sender: FDA-Public Use
  Company Number: US-GLAXOSMITHKLINE-A0390449A

PATIENT
  Age: 60 Year
  Sex: Female

DRUGS (7)
  1. ADVAIR HFA [Suspect]
     Indication: ASTHMA
     Dosage: 1PUFF TWICE PER DAY
     Route: 055
     Dates: start: 20020401, end: 20021201
  2. TENEX [Concomitant]
  3. MAXZIDE [Concomitant]
  4. ALBUTEROL [Concomitant]
     Indication: ASTHMA
  5. AEROBID [Concomitant]
     Indication: ASTHMA
  6. PREMARIN [Concomitant]
  7. NASALIDE [Concomitant]

REACTIONS (4)
  - CONJUNCTIVITIS [None]
  - EAR INFECTION [None]
  - GENERALISED OEDEMA [None]
  - JOINT SWELLING [None]
